FAERS Safety Report 9286818 (Version 5)
Quarter: 2013Q3

REPORT INFORMATION
  Report Type: Report from Study
  Country: CA (occurrence: CA)
  Receive Date: 20130513
  Receipt Date: 20130806
  Transmission Date: 20140515
  Serious: Yes (Other)
  Sender: FDA-Public Use
  Company Number: CA-ALEXION PHARMACEUTICALS INC.-A201300835

PATIENT
  Age: 45 Year
  Sex: Female
  Weight: 70 kg

DRUGS (14)
  1. SOLIRIS [Suspect]
     Indication: PAROXYSMAL NOCTURNAL HAEMOGLOBINURIA
     Dosage: 600 MG, QW
     Route: 042
     Dates: start: 20111115, end: 20111208
  2. SOLIRIS [Suspect]
     Dosage: 900 MG, Q2W
     Route: 042
     Dates: start: 20111228, end: 20120322
  3. SOLIRIS [Suspect]
     Dosage: 900 MG, Q2W
     Route: 042
     Dates: start: 20120402
  4. FOLIC ACID [Concomitant]
     Indication: PRODUCT USED FOR UNKNOWN INDICATION
     Dosage: 5 MG, QD
     Route: 048
     Dates: start: 20110902
  5. TYLENOL [Concomitant]
     Indication: TRANSFUSION
     Dosage: UNK, PRN
     Dates: start: 201108
  6. BENADRYL [Concomitant]
     Indication: TRANSFUSION
     Dosage: UNK, PRN
     Dates: start: 201108
  7. ABREVA [Concomitant]
     Indication: ORAL HERPES
     Dosage: 1 DF, PRN ON LIP
     Route: 061
     Dates: start: 20120411
  8. CEVADROXIL [Concomitant]
     Indication: ABSCESS
     Dosage: 1000 MG, BID
     Route: 048
     Dates: start: 20120825, end: 20120901
  9. CEVADROXIL [Concomitant]
     Dosage: 1000 MG, BID
     Route: 048
     Dates: start: 20120908, end: 20120915
  10. CLOXAPEN [Concomitant]
     Indication: ABSCESS
     Dosage: 50 MG, QID
     Route: 048
     Dates: start: 20120915, end: 20120922
  11. EMTEC-30 [Concomitant]
     Indication: PAIN
     Dosage: 30 MG, PRN
     Route: 048
     Dates: start: 20120915, end: 20120916
  12. CEFADROXIL [Concomitant]
     Indication: PROPHYLAXIS
     Dosage: 1000 MG, BID
     Route: 048
     Dates: start: 20121018, end: 20121028
  13. CEFADROXIL [Concomitant]
     Indication: INFECTION
  14. BACTROBAN [Concomitant]
     Indication: WOUND
     Dosage: 1 COAT APPLICATION TO WOUND DURING DRESSING CHANGE
     Route: 061
     Dates: start: 20121018

REACTIONS (8)
  - Axillary mass [Recovering/Resolving]
  - Haemoglobin decreased [Recovered/Resolved]
  - Acne [Recovered/Resolved]
  - Axillary pain [Recovered/Resolved]
  - Chromaturia [Recovered/Resolved]
  - Subcutaneous abscess [Recovering/Resolving]
  - Erythema [Recovering/Resolving]
  - Nasopharyngitis [Not Recovered/Not Resolved]
